FAERS Safety Report 19067423 (Version 2)
Quarter: 2021Q2

REPORT INFORMATION
  Report Type: Spontaneous
  Country: US (occurrence: US)
  Receive Date: 20210329
  Receipt Date: 20210505
  Transmission Date: 20210717
  Serious: No
  Sender: FDA-Public Use
  Company Number: US-BRISTOL-MYERS SQUIBB COMPANY-BMS-2021-029425

PATIENT
  Age: 60 Year
  Sex: Male

DRUGS (2)
  1. ORENCIA [Suspect]
     Active Substance: ABATACEPT
     Dosage: 125MG/ML,QWK
     Route: 058
     Dates: start: 201910
  2. ORENCIA [Suspect]
     Active Substance: ABATACEPT
     Indication: RHEUMATOID ARTHRITIS
     Dosage: 125 MILLIGRAM, Q4WK
     Route: 058
     Dates: start: 20191030

REACTIONS (4)
  - Off label use [Unknown]
  - Arthralgia [Unknown]
  - Drug ineffective [Unknown]
  - Joint swelling [Unknown]

NARRATIVE: CASE EVENT DATE: 20191030
